FAERS Safety Report 4971850-8 (Version None)
Quarter: 2006Q2

REPORT INFORMATION
  Report Type: 
  Country: None (occurrence: None)
  Receive Date: 20060413
  Receipt Date: 20060403
  Transmission Date: 20061013
  Serious: Yes (Other)
  Sender: FDA-Public Use
  Company Number: ES-GLAXOSMITHKLINE-B0419177A

PATIENT
  Sex: Male

DRUGS (2)
  1. NIQUITIN CQ 14MG [Suspect]
     Indication: SMOKING CESSATION THERAPY
     Dosage: 14MG PER DAY
     Route: 062
  2. ZYNTABAC [Suspect]
     Indication: SMOKING CESSATION THERAPY
     Dosage: 150MG PER DAY
     Route: 048
     Dates: start: 20060307, end: 20060331

REACTIONS (3)
  - BLINDNESS [None]
  - CATARACT [None]
  - VISION BLURRED [None]
